FAERS Safety Report 7217606-7 (Version None)
Quarter: 2010Q4

REPORT INFORMATION
  Report Type: 
  Country: None (occurrence: None)
  Receive Date: 20101230
  Receipt Date: 20101217
  Transmission Date: 20110411
  Serious: Yes (Hospitalization, Disabling)
  Sender: FDA-Public Use
  Company Number: 2010SP004577

PATIENT
  Age: 46 Year
  Sex: Female
  Weight: 96.1626 kg

DRUGS (4)
  1. NUVARING [Suspect]
     Indication: CONTRACEPTION
     Dosage: ; VAG
     Route: 067
     Dates: start: 20070524, end: 20070805
  2. NUVARING [Suspect]
     Indication: HORMONE REPLACEMENT THERAPY
     Dosage: ; VAG
     Route: 067
     Dates: start: 20070524, end: 20070805
  3. NUVARING [Suspect]
     Indication: PREMENSTRUAL SYNDROME
     Dosage: ; VAG
     Route: 067
     Dates: start: 20070524, end: 20070805
  4. EXCEDRIN (MIGRAINE) [Concomitant]

REACTIONS (6)
  - ANHEDONIA [None]
  - ATELECTASIS [None]
  - DEEP VEIN THROMBOSIS [None]
  - DEPRESSION [None]
  - FATIGUE [None]
  - PULMONARY EMBOLISM [None]
